FAERS Safety Report 4828218-4 (Version None)
Quarter: 2005Q4

REPORT INFORMATION
  Report Type: 
  Country: None (occurrence: None)
  Receive Date: 20051115
  Receipt Date: 20041014
  Transmission Date: 20060501
  Serious: No
  Sender: FDA-Public Use
  Company Number: US-BRISTOL-MYERS SQUIBB COMPANY-12732822

PATIENT
  Age: 49 Year
  Sex: Female
  Weight: 63 kg

DRUGS (2)
  1. SUSTIVA [Suspect]
     Dates: start: 20020101
  2. COMBIVIR [Concomitant]

REACTIONS (1)
  - HEART RATE IRREGULAR [None]
